FAERS Safety Report 9120615 (Version 3)
Quarter: 2013Q2

REPORT INFORMATION
  Report Type: Spontaneous
  Country: US (occurrence: US)
  Receive Date: 20130226
  Receipt Date: 20130415
  Transmission Date: 20140414
  Serious: No
  Sender: FDA-Public Use
  Company Number: US-PFIZER INC-2013065899

PATIENT
  Age: 80 Year
  Sex: Female
  Weight: 57.6 kg

DRUGS (3)
  1. XALATAN [Suspect]
     Indication: GLAUCOMA
     Dosage: UNK, 1X/DAY (QHS)
     Route: 047
     Dates: start: 20060727
  2. XALATAN [Suspect]
     Dosage: 1 GTT, 1X/DAY
     Route: 047
     Dates: start: 2008, end: 20111129
  3. TRAVATAN [Suspect]
     Dosage: 1 DF, 1X/DAY (QHS)

REACTIONS (6)
  - Tinnitus [Unknown]
  - Urticaria [Recovered/Resolved]
  - Pruritus [Recovered/Resolved]
  - Blister [Unknown]
  - Insomnia [Unknown]
  - Hallucination, auditory [Not Recovered/Not Resolved]
